FAERS Safety Report 19059419 (Version 1)
Quarter: 2021Q1

REPORT INFORMATION
  Report Type: Spontaneous
  Country: US (occurrence: US)
  Receive Date: 20210325
  Receipt Date: 20210325
  Transmission Date: 20210420
  Serious: No
  Sender: FDA-Public Use
  Company Number: US-BAUSCH-BL-2021-006263

PATIENT
  Age: 64 Year
  Sex: Female

DRUGS (3)
  1. LACRISERT [Suspect]
     Active Substance: HYDROXYPROPYL CELLULOSE
     Indication: DRY EYE
     Dosage: 1?2 DROPS PER DAY ?USING FOR OVER 25 YEARS
     Route: 047
  2. REFRESH CELLUVISC [Concomitant]
     Active Substance: CARBOXYMETHYLCELLULOSE SODIUM
     Indication: PRODUCT USED FOR UNKNOWN INDICATION
     Route: 047
  3. REFRESH P.M. [Concomitant]
     Active Substance: MINERAL OIL\PETROLATUM
     Indication: PRODUCT USED FOR UNKNOWN INDICATION
     Dosage: AT BEDTIME
     Route: 047

REACTIONS (5)
  - Product supply issue [Unknown]
  - Ocular hyperaemia [Unknown]
  - Intentional product use issue [Unknown]
  - Dry eye [Unknown]
  - Ocular discomfort [Unknown]

NARRATIVE: CASE EVENT DATE: 202101
